FAERS Safety Report 10012159 (Version 1)
Quarter: 2014Q1

REPORT INFORMATION
  Report Type: Spontaneous
  Country: US (occurrence: US)
  Receive Date: 20140314
  Receipt Date: 20140314
  Transmission Date: 20141002
  Serious: Yes (Other)
  Sender: FDA-Public Use
  Company Number: US-GLAXOSMITHKLINE-A1064778A

PATIENT
  Age: 59 Year
  Sex: Male

DRUGS (1)
  1. ADVAIR [Suspect]
     Indication: PRODUCT USED FOR UNKNOWN INDICATION
     Route: 065
     Dates: start: 20090924

REACTIONS (5)
  - Diabetes mellitus [Unknown]
  - Disability [Unknown]
  - Asthma [Unknown]
  - Fibromyalgia [Unknown]
  - Malaise [Unknown]
